FAERS Safety Report 5516353-7 (Version None)
Quarter: 2007Q4

REPORT INFORMATION
  Report Type: 
  Country: None (occurrence: None)
  Receive Date: 20071114
  Receipt Date: 20070206
  Transmission Date: 20080405
  Serious: No
  Sender: FDA-Public Use
  Company Number: A0638255A

PATIENT
  Age: 58 Year
  Sex: Female

DRUGS (3)
  1. COMMIT [Suspect]
     Dates: start: 20070130, end: 20070130
  2. NICORETTE [Suspect]
  3. NICORETTE (MINT) [Suspect]
     Dates: start: 20070131

REACTIONS (6)
  - FOAMING AT MOUTH [None]
  - INTENTIONAL DRUG MISUSE [None]
  - NAUSEA [None]
  - ORAL DISCOMFORT [None]
  - PHARMACEUTICAL PRODUCT COMPLAINT [None]
  - PRODUCTIVE COUGH [None]
